FAERS Safety Report 9741202 (Version 1)
Quarter: 2013Q4

REPORT INFORMATION
  Report Type: Spontaneous
  Country: US (occurrence: US)
  Receive Date: 20131209
  Receipt Date: 20131209
  Transmission Date: 20140711
  Serious: No
  Sender: FDA-Public Use
  Company Number: US-BIOGENIDEC-2013BI093319

PATIENT
  Age: 58 Year
  Sex: Female

DRUGS (10)
  1. TECFIDERA [Suspect]
     Indication: MULTIPLE SCLEROSIS
     Route: 048
     Dates: start: 201309
  2. TECFIDERA [Suspect]
     Indication: MULTIPLE SCLEROSIS
     Route: 048
  3. GLYBURIDE [Concomitant]
  4. ASPIRIN [Concomitant]
  5. EVENING PRIMROSE SFTG [Concomitant]
  6. METFORMIN HCL [Concomitant]
  7. LISINOPRIL [Concomitant]
  8. SERTRALINE HCL [Concomitant]
  9. BACLOFEN [Concomitant]
  10. TOPAMAX [Concomitant]

REACTIONS (2)
  - Fluid retention [Unknown]
  - Flushing [Unknown]
